FAERS Safety Report 7524932-0 (Version None)
Quarter: 2011Q2

REPORT INFORMATION
  Report Type: 
  Country: None (occurrence: None)
  Receive Date: 20110606
  Receipt Date: 20110523
  Transmission Date: 20111010
  Serious: Yes (Other)
  Sender: FDA-Public Use
  Company Number: US-ELI_LILLY_AND_COMPANY-US201103006760

PATIENT
  Sex: Female

DRUGS (3)
  1. LEVOTHYROXINE SODIUM [Concomitant]
  2. ZYPREXA [Suspect]
     Dosage: 15 MG, QD
  3. ZYPREXA [Suspect]
     Indication: DEPRESSION
     Dosage: 15 MG, QD
     Dates: start: 20090101

REACTIONS (9)
  - CARDIOMEGALY [None]
  - WEIGHT INCREASED [None]
  - VISUAL IMPAIRMENT [None]
  - EATING DISORDER [None]
  - ARRHYTHMIA [None]
  - TACHYCARDIA [None]
  - OFF LABEL USE [None]
  - WRONG TECHNIQUE IN DRUG USAGE PROCESS [None]
  - HYPOTHYROIDISM [None]
